FAERS Safety Report 9801698 (Version 3)
Quarter: 2014Q3

REPORT INFORMATION
  Report Type: Spontaneous
  Country: US (occurrence: US)
  Receive Date: 20140107
  Receipt Date: 20140820
  Transmission Date: 20150326
  Serious: Yes (Hospitalization, Other)
  Sender: FDA-Public Use
  Company Number: US-009507513-1401USA001311

PATIENT
  Sex: Female
  Weight: 73.16 kg

DRUGS (1)
  1. NUVARING [Suspect]
     Active Substance: ETHINYL ESTRADIOL\ETONOGESTREL
     Indication: ENDOMETRIOSIS
     Dosage: UNK
     Route: 067
     Dates: end: 20130722

REACTIONS (8)
  - Pulmonary embolism [Unknown]
  - Laparoscopic surgery [Unknown]
  - Drug dose omission [Unknown]
  - Cholecystectomy [Unknown]
  - Off label use [Unknown]
  - Nephrolithiasis [Unknown]
  - Migraine [Unknown]
  - Tonsillectomy [Unknown]

NARRATIVE: CASE EVENT DATE: 201306
